FAERS Safety Report 8095777-0 (Version None)
Quarter: 2012Q1

REPORT INFORMATION
  Report Type: 
  Country: None (occurrence: None)
  Receive Date: 20120129
  Receipt Date: 20111214
  Transmission Date: 20120608
  Serious: No
  Sender: FDA-Public Use
  Company Number: US-ABBOTT-11P-163-0883438-00

PATIENT
  Age: 49 Year
  Sex: Female

DRUGS (9)
  1. NEXIUM [Concomitant]
     Indication: GASTROOESOPHAGEAL REFLUX DISEASE
  2. CALCIUM [Concomitant]
     Indication: MINERAL SUPPLEMENTATION
  3. MAGNESIUM [Concomitant]
     Indication: MINERAL SUPPLEMENTATION
  4. HUMIRA [Suspect]
     Indication: CROHN'S DISEASE
     Dates: start: 20110919
  5. HYOSCYAMINE [Concomitant]
     Indication: MUSCLE SPASMS
     Dosage: EVERY 4-6 HOURS, AS NEEDED
  6. BUDESONIDE [Concomitant]
     Indication: PRODUCT USED FOR UNKNOWN INDICATION
     Dosage: 3 CAPSULES EVERY MORNING
  7. NASONEX [Concomitant]
     Indication: COUGH
  8. SINGULAIR [Concomitant]
     Indication: COUGH
     Dosage: 10 MG DAILY
     Route: 048
  9. MULTI-VITAMIN [Concomitant]
     Indication: PRODUCT USED FOR UNKNOWN INDICATION

REACTIONS (1)
  - DRUG INEFFECTIVE [None]
